FAERS Safety Report 7932160-X (Version None)
Quarter: 2011Q4

REPORT INFORMATION
  Report Type: 
  Country: None (occurrence: None)
  Receive Date: 20111121
  Receipt Date: 20111115
  Transmission Date: 20120403
  Serious: Yes (Life-Threatening, Other)
  Sender: FDA-Public Use
  Company Number: US-ASTRAZENECA-2011SE69351

PATIENT
  Age: 55 Year
  Sex: Female
  Weight: 79.4 kg

DRUGS (15)
  1. XANAX [Concomitant]
  2. ALBUTEROL [Concomitant]
  3. PLAVIX [Concomitant]
  4. PRILOSEC [Concomitant]
  5. ACETAMINOPHEN [Concomitant]
  6. ASPIRIN [Concomitant]
     Dosage: 81 MG
  7. CYMBALTA [Concomitant]
  8. SPIRIVA [Concomitant]
  9. PROAIR HFA [Concomitant]
  10. LEVOTHYROXINE SODIUM [Concomitant]
     Indication: THYROID DISORDER
  11. CRESTOR [Suspect]
     Route: 048
  12. SEROQUEL [Suspect]
     Indication: BIPOLAR DISORDER
     Route: 048
  13. SEROQUEL [Suspect]
     Route: 048
  14. MIRALAX [Concomitant]
  15. SEDIA [Concomitant]

REACTIONS (9)
  - MENTAL DISORDER [None]
  - SUICIDAL IDEATION [None]
  - CHRONIC OBSTRUCTIVE PULMONARY DISEASE [None]
  - FEELING ABNORMAL [None]
  - DRUG DOSE OMISSION [None]
  - THERAPEUTIC RESPONSE UNEXPECTED [None]
  - MUSCULOSKELETAL PAIN [None]
  - SUICIDE ATTEMPT [None]
  - INTRACARDIAC MASS [None]
